FAERS Safety Report 20537401 (Version 1)
Quarter: 2022Q1

REPORT INFORMATION
  Report Type: Spontaneous
  Country: FR (occurrence: FR)
  Receive Date: 20220302
  Receipt Date: 20220302
  Transmission Date: 20220423
  Serious: Yes (Disabling, Congenital Anomaly, Other)
  Sender: FDA-Public Use
  Company Number: FR-ABBVIE-22K-056-4292868-00

PATIENT
  Sex: Male
  Weight: 3.27 kg

DRUGS (1)
  1. VALPROATE SODIUM [Suspect]
     Active Substance: VALPROATE SODIUM
     Indication: Maternal exposure timing unspecified
     Route: 064

REACTIONS (25)
  - Brain malformation [Unknown]
  - Cerebral ventriculogram abnormal [Unknown]
  - Talipes [Unknown]
  - Brachymetatarsia [Unknown]
  - Developmental delay [Unknown]
  - Psychomotor skills impaired [Unknown]
  - Autism spectrum disorder [Unknown]
  - Learning disorder [Unknown]
  - Speech disorder developmental [Unknown]
  - Dysgraphia [Unknown]
  - Disturbance in attention [Unknown]
  - Intellectual disability [Unknown]
  - Cognitive disorder [Unknown]
  - Ear, nose and throat disorder [Unknown]
  - Lung disorder [Unknown]
  - Disorientation [Unknown]
  - Rib fracture [Unknown]
  - Personality disorder [Unknown]
  - Hypocalcaemia [Unknown]
  - Tremor [Unknown]
  - Hypotonia [Unknown]
  - Bronchopneumopathy [Unknown]
  - Disability [Unknown]
  - Hypersensitivity [Unknown]
  - Foetal exposure during pregnancy [Unknown]

NARRATIVE: CASE EVENT DATE: 20160210
